FAERS Safety Report 25146944 (Version 2)
Quarter: 2025Q2

REPORT INFORMATION
  Report Type: Spontaneous
  Country: US (occurrence: US)
  Receive Date: 20250401
  Receipt Date: 20250401
  Transmission Date: 20250716
  Serious: Yes (Life-Threatening, Other)
  Sender: AMGEN
  Company Number: US-AMGEN-USASP2025059789

PATIENT
  Age: 76 Year
  Sex: Female

DRUGS (3)
  1. RITUXIMAB [Suspect]
     Active Substance: RITUXIMAB
     Indication: Myocarditis-myositis-myasthenia gravis overlap syndrome
     Route: 065
  2. DURVALUMAB [Suspect]
     Active Substance: DURVALUMAB
     Indication: Non-small cell lung cancer
     Route: 065
  3. PLASMA-PLEX [Concomitant]
     Active Substance: PLASMA PROTEIN FRACTION (HUMAN)

REACTIONS (3)
  - Respiratory disorder [Unknown]
  - Drug ineffective [Unknown]
  - Off label use [Unknown]
